FAERS Safety Report 16066656 (Version 1)
Quarter: 2019Q1

REPORT INFORMATION
  Report Type: Spontaneous
  Country: US (occurrence: US)
  Receive Date: 20190313
  Receipt Date: 20190313
  Transmission Date: 20190418
  Serious: Yes (Hospitalization, Other)
  Sender: FDA-Public Use
  Company Number: US-JNJFOC-20190309154

PATIENT
  Age: 62 Year
  Sex: Male

DRUGS (2)
  1. INVOKANA [Suspect]
     Active Substance: CANAGLIFLOZIN
     Indication: TYPE 2 DIABETES MELLITUS
     Route: 048
     Dates: start: 20141124
  2. INVOKANA [Suspect]
     Active Substance: CANAGLIFLOZIN
     Indication: TYPE 2 DIABETES MELLITUS
     Route: 048
     Dates: start: 20141125

REACTIONS (6)
  - Diabetic foot [Unknown]
  - Toe amputation [Unknown]
  - Product prescribing error [Unknown]
  - Osteomyelitis [Unknown]
  - Dry gangrene [Unknown]
  - Off label use [Unknown]

NARRATIVE: CASE EVENT DATE: 20141125
